FAERS Safety Report 20624794 (Version 1)
Quarter: 2022Q1

REPORT INFORMATION
  Report Type: Spontaneous
  Country: US (occurrence: US)
  Receive Date: 20220323
  Receipt Date: 20220323
  Transmission Date: 20220424
  Serious: No
  Sender: FDA-Public Use
  Company Number: US-drreddys-SPO/USA/22/0147896

PATIENT
  Age: 74 Year
  Sex: Female
  Weight: 49.5 kg

DRUGS (1)
  1. LANSOPRAZOLE [Suspect]
     Active Substance: LANSOPRAZOLE
     Indication: Dyspepsia

REACTIONS (2)
  - Drug ineffective [Unknown]
  - Product quality issue [Unknown]
